FAERS Safety Report 20762916 (Version 1)
Quarter: 2022Q2

REPORT INFORMATION
  Report Type: Spontaneous
  Country: US (occurrence: US)
  Receive Date: 20220428
  Receipt Date: 20220428
  Transmission Date: 20220720
  Serious: Yes (Other)
  Sender: FDA-Public Use
  Company Number: US-AMERICAN REGENT INC-2022001133

PATIENT
  Age: 17 Year
  Sex: Male
  Weight: 76.5 kg

DRUGS (12)
  1. HYDRALAZINE HYDROCHLORIDE [Suspect]
     Active Substance: HYDRALAZINE HYDROCHLORIDE
     Indication: Hypertension
     Dosage: 20 MILLIGRAM
     Route: 065
  2. LABETALOL [Suspect]
     Active Substance: LABETALOL\LABETALOL HYDROCHLORIDE
     Indication: Hypertension
     Dosage: 25 MILLIGRAM
     Route: 065
  3. BUPIVACAINE [Suspect]
     Active Substance: BUPIVACAINE
     Indication: Functional endoscopic sinus surgery
     Dosage: MIXTURE OF 6 ML OF 0.5% BUPIVACAINE AND 6 ML OF LIPOSOMAL BUPIVACAINE (13.3 MG/ML) WAS PREPARED, DIV
  4. PROPOFOL [Concomitant]
     Active Substance: PROPOFOL
     Indication: Endotracheal intubation
     Dosage: UNK
     Route: 065
  5. FENTANYL [Concomitant]
     Active Substance: FENTANYL
     Indication: Endotracheal intubation
     Dosage: UNK
     Route: 065
  6. LIDOCAINE [Concomitant]
     Active Substance: LIDOCAINE
     Indication: Endotracheal intubation
     Dosage: UNK
     Route: 065
  7. ROCURONIUM [Concomitant]
     Active Substance: ROCURONIUM BROMIDE
     Indication: Endotracheal intubation
     Dosage: UNK
     Route: 065
  8. SEVOFLURANE [Concomitant]
     Active Substance: SEVOFLURANE
     Indication: Endotracheal intubation
     Dosage: UNK
     Route: 065
  9. LIDOCAINE HCL AND EPINEPHRINE [EPINEPHRINE;LIDOCAINE HYDROCHLORIDE] [Concomitant]
     Indication: Functional endoscopic sinus surgery
     Dosage: 3.5 ML OF 2% LIDOCAINE WITH 1:100,000 EPINEPHRINE
  10. OXYMETAZOLINE [Concomitant]
     Active Substance: OXYMETAZOLINE
     Indication: Functional endoscopic sinus surgery
     Dosage: UNK
     Route: 061
  11. SUGAMMADEX [Concomitant]
     Active Substance: SUGAMMADEX
     Indication: Functional endoscopic sinus surgery
     Dosage: UNK
     Route: 065
  12. ONDANSETRON [Concomitant]
     Active Substance: ONDANSETRON
     Indication: Functional endoscopic sinus surgery
     Dosage: UNK
     Route: 065

REACTIONS (2)
  - Drug ineffective [Unknown]
  - Hypertension [Recovered/Resolved]
